FAERS Safety Report 15704352 (Version 2)
Quarter: 2018Q4

REPORT INFORMATION
  Report Type: Spontaneous
  Country: ZA (occurrence: ZA)
  Receive Date: 20181210
  Receipt Date: 20181210
  Transmission Date: 20190205
  Serious: Yes (Disabling)
  Sender: FDA-Public Use
  Company Number: PHHY2018ZA178449

PATIENT
  Age: 68 Year
  Sex: Female

DRUGS (2)
  1. DUOTRAV (ALC) [Suspect]
     Active Substance: TIMOLOL MALEATE\TRAVOPROST
     Indication: PRODUCT USED FOR UNKNOWN INDICATION
     Route: 047
  2. TRAVATAN [Suspect]
     Active Substance: TRAVOPROST
     Indication: GLAUCOMA
     Dosage: UNK
     Route: 047
     Dates: start: 20161020, end: 20161201

REACTIONS (7)
  - Lacrimation increased [Recovered/Resolved]
  - Disorder of orbit [Recovered/Resolved]
  - Eye allergy [Unknown]
  - Blepharal pigmentation [Recovered/Resolved]
  - Ocular hyperaemia [Recovered/Resolved]
  - Drug intolerance [Recovered/Resolved]
  - Eye pruritus [Recovered/Resolved]

NARRATIVE: CASE EVENT DATE: 201610
